FAERS Safety Report 16160926 (Version 1)
Quarter: 2019Q2

REPORT INFORMATION
  Report Type: Spontaneous
  Country: US (occurrence: US)
  Receive Date: 20190405
  Receipt Date: 20190405
  Transmission Date: 20190711
  Serious: No
  Sender: FDA-Public Use
  Company Number: US-JNJFOC-20190316417

PATIENT
  Age: 74 Year
  Sex: Male
  Weight: 83.92 kg

DRUGS (2)
  1. MENS ROGAINE EXTRA STRENGTH UNSCENTED [Suspect]
     Active Substance: MINOXIDIL
     Route: 061
  2. MENS ROGAINE EXTRA STRENGTH UNSCENTED [Suspect]
     Active Substance: MINOXIDIL
     Indication: ALOPECIA
     Dosage: BOOKLET RECOMMENDED AMOUNT
     Route: 061
     Dates: start: 20190207

REACTIONS (2)
  - Pruritus [Recovered/Resolved]
  - Inappropriate schedule of product administration [Unknown]

NARRATIVE: CASE EVENT DATE: 20190207
